FAERS Safety Report 5480932-6 (Version None)
Quarter: 2007Q4

REPORT INFORMATION
  Report Type: 
  Country: None (occurrence: None)
  Receive Date: 20071009
  Receipt Date: 20070924
  Transmission Date: 20080405
  Serious: Yes (Death, Hospitalization)
  Sender: FDA-Public Use
  Company Number: DE-GENENTECH-248819

PATIENT
  Sex: Female

DRUGS (3)
  1. BEVACIZUMAB [Suspect]
     Indication: NON-SMALL CELL LUNG CANCER
     Dosage: 870 MG, Q3W
     Route: 042
     Dates: start: 20070502, end: 20070921
  2. GEMCITABINE HCL [Concomitant]
     Indication: NON-SMALL CELL LUNG CANCER
     Dates: start: 20070502, end: 20070921
  3. CISPLATIN [Concomitant]
     Indication: NON-SMALL CELL LUNG CANCER
     Dates: start: 20070502, end: 20070921

REACTIONS (1)
  - CONVULSION [None]
